FAERS Safety Report 19877673 (Version 1)
Quarter: 2021Q3

REPORT INFORMATION
  Report Type: Spontaneous
  Country: US (occurrence: US)
  Receive Date: 20210921
  Receipt Date: 20210921
  Transmission Date: 20211014
  Serious: Yes (Hospitalization)
  Sender: FDA-Public Use
  Company Number: None

PATIENT
  Age: 53 Year
  Sex: Male
  Weight: 71.1 kg

DRUGS (1)
  1. PEMBROLIZUMAB 200MG IN 100 ML SALINE [Suspect]
     Active Substance: PEMBROLIZUMAB
     Indication: KERATINISING SQUAMOUS CELL CARCINOMA OF NASOPHARYNX
     Dosage: ?          OTHER DOSE:200/100 MG/ML;?
     Route: 042
     Dates: start: 20210112

REACTIONS (4)
  - Mental status changes [None]
  - Encephalopathy [None]
  - Apnoea [None]
  - Stridor [None]

NARRATIVE: CASE EVENT DATE: 20210914
